FAERS Safety Report 21861095 (Version 7)
Quarter: 2023Q4

REPORT INFORMATION
  Report Type: Spontaneous
  Country: JP (occurrence: JP)
  Receive Date: 20230113
  Receipt Date: 20231115
  Transmission Date: 20240110
  Serious: Yes (Life-Threatening, Other)
  Sender: FDA-Public Use
  Company Number: JP-ONO-2023JP000779

PATIENT
  Age: 64 Year
  Sex: Male
  Weight: 64.0 kg

DRUGS (6)
  1. YERVOY [Suspect]
     Active Substance: IPILIMUMAB
     Indication: Non-small cell lung cancer recurrent
     Route: 041
     Dates: start: 20210525, end: 20210525
  2. YERVOY [Suspect]
     Active Substance: IPILIMUMAB
     Dosage: 14 COURSES
     Route: 041
     Dates: start: 20210707, end: 20230412
  3. OPDIVO [Suspect]
     Active Substance: NIVOLUMAB
     Indication: Non-small cell lung cancer recurrent
     Route: 041
     Dates: start: 20210525, end: 20210525
  4. OPDIVO [Suspect]
     Active Substance: NIVOLUMAB
     Dosage: 29 COURSES
     Route: 041
     Dates: start: 20210707, end: 20230412
  5. ELIQUIS [Concomitant]
     Active Substance: APIXABAN
     Indication: Product used for unknown indication
     Route: 048
     Dates: start: 20201125, end: 20210526
  6. BISOPROLOL FUMARATE [Concomitant]
     Active Substance: BISOPROLOL FUMARATE
     Indication: Product used for unknown indication
     Route: 048
     Dates: start: 20200205

REACTIONS (2)
  - Cerebral infarction [Recovering/Resolving]
  - Blood creatinine increased [Not Recovered/Not Resolved]

NARRATIVE: CASE EVENT DATE: 20210526
